FAERS Safety Report 6253300-7 (Version None)
Quarter: 2009Q3

REPORT INFORMATION
  Report Type: 
  Country: None (occurrence: None)
  Receive Date: 20090701
  Receipt Date: 20090626
  Transmission Date: 20100115
  Serious: Yes (Hospitalization)
  Sender: FDA-Public Use
  Company Number: DE-ABBOTT-09P-062-0582016-00

PATIENT
  Sex: Male

DRUGS (7)
  1. HUMIRA [Suspect]
     Indication: CROHN'S DISEASE
     Route: 058
     Dates: start: 20071008
  2. ALENDRONIC ACID [Suspect]
     Indication: CROHN'S DISEASE
  3. AZATHIOPRIN [Concomitant]
     Indication: CROHN'S DISEASE
  4. SULFASALAZINE [Concomitant]
     Indication: CROHN'S DISEASE
  5. BUSCOPAN [Concomitant]
     Indication: CROHN'S DISEASE
  6. BUDENOFALK [Concomitant]
     Indication: CROHN'S DISEASE
  7. OSSOFORTIN [Concomitant]
     Indication: CROHN'S DISEASE

REACTIONS (1)
  - GASTROINTESTINAL PAIN [None]
